FAERS Safety Report 5116617-5 (Version None)
Quarter: 2006Q3

REPORT INFORMATION
  Report Type: 
  Country: None (occurrence: None)
  Receive Date: 20060928
  Receipt Date: 20060920
  Transmission Date: 20061208
  Serious: Yes (Hospitalization, Other)
  Sender: FDA-Public Use
  Company Number: ZA-AVENTIS-200619829GDDC

PATIENT
  Sex: Female

DRUGS (1)
  1. KETEK [Suspect]
     Indication: PNEUMONIA
     Dosage: DOSE: UNK
     Route: 048

REACTIONS (1)
  - LIVER FUNCTION TEST ABNORMAL [None]
